FAERS Safety Report 8814924 (Version 2)
Quarter: 2012Q4

REPORT INFORMATION
  Report Type: Report from Study
  Country: US (occurrence: US)
  Receive Date: 20120928
  Receipt Date: 20121019
  Transmission Date: 20130627
  Serious: Yes (Hospitalization)
  Sender: FDA-Public Use
  Company Number: US-PFIZER INC-2012236825

PATIENT
  Age: 61 Year
  Sex: Female

DRUGS (3)
  1. BLINDED THERAPY [Suspect]
     Indication: BREAST CANCER
     Route: 030
     Dates: start: 20120824, end: 20120824
  2. CARBOPLATIN [Suspect]
     Indication: BREAST CANCER FEMALE
     Dosage: 850 mg, 1x/day
     Route: 042
     Dates: start: 20120802, end: 20120824
  3. TAXOTERE [Suspect]
     Indication: BREAST CANCER FEMALE
     Dosage: 420 mg, 1x/day
     Route: 042
     Dates: start: 20120621, end: 20120824

REACTIONS (4)
  - Febrile neutropenia [Recovered/Resolved]
  - Nausea [Recovered/Resolved]
  - Vomiting [Recovered/Resolved]
  - Diarrhoea [Recovered/Resolved]
